FAERS Safety Report 22849375 (Version 4)
Quarter: 2023Q4

REPORT INFORMATION
  Report Type: Spontaneous
  Country: US (occurrence: US)
  Receive Date: 20230822
  Receipt Date: 20231212
  Transmission Date: 20240109
  Serious: No
  Sender: FDA-Public Use
  Company Number: US-BRISTOL-MYERS SQUIBB COMPANY-2023-117864

PATIENT
  Age: 54 Year
  Sex: Male

DRUGS (1)
  1. POMALYST [Suspect]
     Active Substance: POMALIDOMIDE
     Indication: Immunosuppression
     Route: 048
     Dates: start: 20230731

REACTIONS (6)
  - Diarrhoea [Recovering/Resolving]
  - Pain [Unknown]
  - Abdominal pain upper [Unknown]
  - Asthenia [Unknown]
  - Off label use [Unknown]
  - Hypoaesthesia [Unknown]
